FAERS Safety Report 15266967 (Version 1)
Quarter: 2018Q3

REPORT INFORMATION
  Report Type: Spontaneous
  Country: FR (occurrence: FR)
  Receive Date: 20180810
  Receipt Date: 20180810
  Transmission Date: 20181010
  Serious: Yes (Death, Other)
  Sender: FDA-Public Use
  Company Number: FR-PFIZER INC-2018316799

PATIENT

DRUGS (2)
  1. MISOPROSTOL. [Suspect]
     Active Substance: MISOPROSTOL
     Indication: ABORTION INDUCED
     Dosage: 200 UG, UNK
     Route: 064
     Dates: start: 201803, end: 201803
  2. MIFEPRISTONE [Concomitant]
     Active Substance: MIFEPRISTONE
     Indication: ABORTION INDUCED
     Dosage: 600 MG, SINGLE
     Route: 064
     Dates: start: 201804

REACTIONS (3)
  - Maternal exposure during pregnancy [Fatal]
  - Brain malformation [Fatal]
  - Congenital anomaly [Fatal]

NARRATIVE: CASE EVENT DATE: 20180525
